FAERS Safety Report 14333715 (Version 4)
Quarter: 2018Q4

REPORT INFORMATION
  Report Type: Report from Study
  Country: DE (occurrence: DE)
  Receive Date: 20171228
  Receipt Date: 20181203
  Transmission Date: 20190204
  Serious: Yes (Death, Other)
  Sender: FDA-Public Use
  Company Number: DE-PFIZER INC-2017549574

PATIENT
  Age: 65 Year
  Sex: Female
  Weight: 54 kg

DRUGS (10)
  1. ERBITUX [Suspect]
     Active Substance: CETUXIMAB
     Dosage: 250 MG/M2, WEEKLY, SOLUTION FOR INFUSION
     Route: 042
     Dates: start: 201705, end: 20170606
  2. FLUOROURACIL. [Suspect]
     Active Substance: FLUOROURACIL
     Indication: COLORECTAL CANCER METASTATIC
     Dosage: 3000 MG/M2, WEEKLY
     Route: 042
     Dates: start: 20170501, end: 20170606
  3. PEGYLATED LIPOSOMAL IRINOTECAN [Suspect]
     Active Substance: IRINOTECAN HYDROCHLORIDE
     Indication: COLORECTAL CANCER METASTATIC
     Dosage: 120 MG/M2, UNK
     Route: 042
     Dates: start: 20170606
  4. TAVEGIL /00137201/ [Concomitant]
     Active Substance: CLEMASTINE FUMARATE
     Indication: PREMEDICATION
     Dosage: UNK
  5. CALCIUM FOLINATE [Suspect]
     Active Substance: LEUCOVORIN CALCIUM
     Indication: COLORECTAL CANCER METASTATIC
     Dosage: 400 MG/M2, WEEKLY, SOLUTION FOR INFUSION
     Route: 042
     Dates: start: 20170515, end: 20170606
  6. ERBITUX [Suspect]
     Active Substance: CETUXIMAB
     Dosage: 400 MG/M2, WEEKLY, SOLUTION FOR INFUSION
     Route: 042
     Dates: start: 201705, end: 20170606
  7. IRINOTECAN [Suspect]
     Active Substance: IRINOTECAN
     Indication: COLORECTAL CANCER METASTATIC
     Dosage: 120 MG/M2, WEEKLY
     Route: 042
     Dates: end: 20170606
  8. ALOXI [Concomitant]
     Active Substance: PALONOSETRON HYDROCHLORIDE
     Indication: PREMEDICATION
     Dosage: UNK
  9. ERBITUX [Suspect]
     Active Substance: CETUXIMAB
     Dosage: 600 MG/M2, UNK
     Route: 042
     Dates: start: 20170606
  10. ERBITUX [Suspect]
     Active Substance: CETUXIMAB
     Indication: COLORECTAL CANCER METASTATIC
     Dosage: 400 MG/M2, WEEKLY
     Route: 042
     Dates: start: 20170501, end: 20170515

REACTIONS (2)
  - Hepatomegaly [Fatal]
  - General physical health deterioration [Fatal]

NARRATIVE: CASE EVENT DATE: 20170612
